FAERS Safety Report 7549409-8 (Version None)
Quarter: 2011Q2

REPORT INFORMATION
  Report Type: 
  Country: None (occurrence: None)
  Receive Date: 20110615
  Receipt Date: 20110531
  Transmission Date: 20111010
  Serious: Yes (Life-Threatening, Hospitalization, Other)
  Sender: FDA-Public Use
  Company Number: US-BAYER-2011-002259

PATIENT
  Age: 31 Year
  Sex: Female

DRUGS (10)
  1. YASMIN [Suspect]
     Indication: ACNE
  2. YAZ [Suspect]
     Indication: MIGRAINE
  3. YAZ [Suspect]
     Indication: CONTRACEPTION
     Dosage: UNK
     Dates: start: 20071113, end: 20080922
  4. YAZ [Suspect]
     Indication: POLYCYSTIC OVARIES
  5. DROSPIRENONE AND ETHINYL ESTRADIOL [Suspect]
     Indication: CONTRACEPTION
     Dosage: UNK
     Dates: start: 20081019, end: 20081106
  6. YASMIN [Suspect]
     Indication: CONTRACEPTION
     Dosage: UNK
     Dates: start: 20031206, end: 20071001
  7. YAZ [Suspect]
     Indication: ACNE
  8. YASMIN [Suspect]
     Indication: MIGRAINE
  9. YASMIN [Suspect]
     Indication: POLYCYSTIC OVARIES
  10. MERIDIA [Concomitant]
     Indication: MEDICAL DIET

REACTIONS (12)
  - PAIN [None]
  - PULMONARY EMBOLISM [None]
  - CHEST PAIN [None]
  - GASTRIC DISORDER [None]
  - ABDOMINAL PAIN UPPER [None]
  - DYSPNOEA [None]
  - BILE DUCT STONE [None]
  - EMOTIONAL DISTRESS [None]
  - NAUSEA [None]
  - DIARRHOEA [None]
  - ANXIETY [None]
  - HEADACHE [None]
